FAERS Safety Report 13393931 (Version 1)
Quarter: 2017Q1

REPORT INFORMATION
  Report Type: Spontaneous
  Country: US (occurrence: US)
  Receive Date: 20170331
  Receipt Date: 20170331
  Transmission Date: 20170429
  Serious: Yes (Other)
  Sender: FDA-Public Use
  Company Number: US-TOLMAR, INC.-TOLG20170129

PATIENT
  Sex: Male

DRUGS (1)
  1. IMIQUIMOD. [Suspect]
     Active Substance: IMIQUIMOD
     Indication: ACTINIC KERATOSIS
     Route: 061

REACTIONS (9)
  - Application site reaction [Recovered/Resolved]
  - Tongue eruption [Recovered/Resolved]
  - Application site erythema [Recovered/Resolved]
  - Pain of skin [Recovered/Resolved]
  - Lip erosion [Recovered/Resolved]
  - Oral mucosa erosion [Recovered/Resolved]
  - Scab [Recovered/Resolved]
  - Erythema multiforme [Recovered/Resolved]
  - Rash papular [Recovered/Resolved]
